FAERS Safety Report 7688099-0 (Version None)
Quarter: 2011Q3

REPORT INFORMATION
  Report Type: 
  Country: None (occurrence: None)
  Receive Date: 20110817
  Receipt Date: 20110804
  Transmission Date: 20111222
  Serious: No
  Sender: FDA-Public Use
  Company Number: US-B.I. PHARMACEUTICALS,INC./RIDGEFIELD-2011-BP-19304BP

PATIENT
  Sex: Female

DRUGS (3)
  1. ZANTAC 150 [Suspect]
     Indication: HYPERCHLORHYDRIA
     Dosage: 150 MG
     Route: 048
     Dates: start: 20000101, end: 20110803
  2. MEDICATION NOT FURTHER SPECIFIED [Concomitant]
     Indication: PULMONARY OEDEMA
  3. POTASSIUM [Concomitant]
     Indication: PULMONARY OEDEMA
     Route: 048

REACTIONS (1)
  - DRUG INEFFECTIVE [None]
